FAERS Safety Report 16398164 (Version 1)
Quarter: 2019Q3

REPORT INFORMATION
  Report Type: Spontaneous
  Country: MY (occurrence: MY)
  Receive Date: 20190605
  Receipt Date: 20190605
  Transmission Date: 20191004
  Serious: Yes (Life-Threatening, Hospitalization)
  Sender: FDA-Public Use
  Company Number: None

PATIENT
  Age: 53 Year
  Sex: Female
  Weight: 57 kg

DRUGS (5)
  1. DAFLON [Concomitant]
  2. GLUCOSAMINE HCI [Concomitant]
  3. TOZAAR PLUS 50/12.5 [Suspect]
     Active Substance: HYDROCHLOROTHIAZIDE\LOSARTAN
     Indication: HYPERTENSION
     Dosage: ?          QUANTITY:0.5 TABLET(S);?
     Route: 048
  4. MEMETHOL BARRIER SPRAY [Concomitant]
  5. ITROPIDE HYDROCHLORIDE [Concomitant]

REACTIONS (1)
  - Large intestine polyp [None]

NARRATIVE: CASE EVENT DATE: 20190413
